FAERS Safety Report 8549973-6 (Version None)
Quarter: 2012Q3

REPORT INFORMATION
  Report Type: 
  Country: None (occurrence: None)
  Receive Date: 20120730
  Receipt Date: 20120720
  Transmission Date: 20120928
  Serious: Yes (Hospitalization, Other)
  Sender: FDA-Public Use
  Company Number: US-ABBOTT-12P-163-0959172-00

PATIENT
  Sex: Female
  Weight: 108.96 kg

DRUGS (12)
  1. CELEBREX [Concomitant]
     Indication: RHEUMATOID ARTHRITIS
  2. ENBREL [Concomitant]
     Indication: RHEUMATOID ARTHRITIS
  3. FLEXERIL [Concomitant]
     Indication: PAIN
  4. MULTIPLE VITAMIN [Concomitant]
     Indication: VITAMIN SUPPLEMENTATION
  5. METHOTREXATE [Concomitant]
     Indication: RHEUMATOID ARTHRITIS
  6. TRAMADOL HYDROCHLORIDE [Concomitant]
     Indication: PAIN
  7. DILTIAZEM [Concomitant]
     Indication: TACHYCARDIA
  8. ASPIRIN [Concomitant]
     Indication: PRODUCT USED FOR UNKNOWN INDICATION
  9. ARAVA [Suspect]
     Indication: RHEUMATOID ARTHRITIS
     Dates: start: 20111101, end: 20111201
  10. HUMIRA [Suspect]
     Indication: RHEUMATOID ARTHRITIS
     Dates: start: 20101101, end: 20111101
  11. SPIRIVA [Concomitant]
     Indication: CHRONIC OBSTRUCTIVE PULMONARY DISEASE
  12. ELAVIL [Concomitant]
     Indication: SLEEP DISORDER THERAPY

REACTIONS (5)
  - VERTIGO [None]
  - TACHYCARDIA [None]
  - PNEUMONIA [None]
  - DEHYDRATION [None]
  - BRONCHITIS [None]
